FAERS Safety Report 21478575 (Version 2)
Quarter: 2022Q4

REPORT INFORMATION
  Report Type: Spontaneous
  Country: FR (occurrence: FR)
  Receive Date: 20221019
  Receipt Date: 20221031
  Transmission Date: 20230113
  Serious: Yes (Hospitalization, Other)
  Sender: FDA-Public Use
  Company Number: FR-NOVARTISPH-NVSC2022FR234362

PATIENT
  Age: 46 Year
  Sex: Male
  Weight: 124 kg

DRUGS (4)
  1. TACROLIMUS [Suspect]
     Active Substance: TACROLIMUS
     Indication: Immunosuppression
     Dosage: 2 MG, UNKNOWN FREQ.
     Route: 048
     Dates: start: 20170709
  2. METRONIDAZOLE [Concomitant]
     Active Substance: METRONIDAZOLE
     Indication: Antibiotic therapy
     Dosage: 500 MG, QD
     Route: 048
     Dates: start: 20211123, end: 20211126
  3. CELLCEPT [Concomitant]
     Active Substance: MYCOPHENOLATE MOFETIL
     Indication: Immunosuppression
     Dosage: 2000 UNKNOWN UNITS (TOTAL DAILY DOSE)
     Route: 065
     Dates: start: 20160408, end: 20210112
  4. CELLCEPT [Concomitant]
     Active Substance: MYCOPHENOLATE MOFETIL
     Dosage: 2000 UNKNOWN UNITS (TOTAL DAILY DOSE)
     Route: 065
     Dates: start: 20210209

REACTIONS (1)
  - Cholecystitis [Recovered/Resolved]

NARRATIVE: CASE EVENT DATE: 20211123
